FAERS Safety Report 13304958 (Version 1)
Quarter: 2017Q1

REPORT INFORMATION
  Report Type: Spontaneous
  Country: US (occurrence: US)
  Receive Date: 20170308
  Receipt Date: 20170308
  Transmission Date: 20170428
  Serious: No
  Sender: FDA-Public Use
  Company Number: US-PFIZER INC-2017093060

PATIENT
  Age: 61 Year
  Sex: Male
  Weight: 92.99 kg

DRUGS (3)
  1. CHANTIX [Suspect]
     Active Substance: VARENICLINE TARTRATE
     Dosage: 1 MG, 2X/DAY
     Dates: start: 201702
  2. CHANTIX [Suspect]
     Active Substance: VARENICLINE TARTRATE
     Indication: SMOKING CESSATION THERAPY
     Dosage: .5 MG, 1X/DAY (FOR THE FIRST 3 DAYS)
     Route: 048
     Dates: start: 20170215, end: 20170217
  3. CHANTIX [Suspect]
     Active Substance: VARENICLINE TARTRATE
     Dosage: 0.5 MG, 2X/DAY (ONE IN THE MORNING AND ONE IN THE AFTERNOON)
     Dates: start: 20170218, end: 201702

REACTIONS (3)
  - Malaise [Unknown]
  - Asthenia [Unknown]
  - Dizziness [Unknown]

NARRATIVE: CASE EVENT DATE: 201702
